FAERS Safety Report 8457255-6 (Version None)
Quarter: 2012Q2

REPORT INFORMATION
  Report Type: 
  Country: None (occurrence: None)
  Receive Date: 20120621
  Receipt Date: 20120326
  Transmission Date: 20120825
  Serious: Yes (Other)
  Sender: FDA-Public Use
  Company Number: US-BAYER-2011-119569

PATIENT
  Age: 53 Year
  Sex: Female
  Weight: 54 kg

DRUGS (2)
  1. ASPIRIN [Suspect]
     Dosage: 1 DF, UNK
     Dates: start: 20111212
  2. ASPIRIN [Suspect]
     Indication: TOOTHACHE
     Dosage: 1 DF, TID
     Route: 048
     Dates: start: 20111211

REACTIONS (4)
  - TOOTHACHE [None]
  - EYELID OEDEMA [None]
  - SWELLING FACE [None]
  - DRUG HYPERSENSITIVITY [None]
